FAERS Safety Report 9340442 (Version 1)
Quarter: 2013Q2

REPORT INFORMATION
  Report Type: Spontaneous
  Country: US (occurrence: None)
  Receive Date: 20130610
  Receipt Date: 20130610
  Transmission Date: 20140414
  Serious: No
  Sender: FDA-Public Use
  Company Number: None

PATIENT
  Age: 66 Year
  Sex: Female
  Weight: 53.07 kg

DRUGS (1)
  1. EVISTA [Suspect]
     Dosage: 1 DAILY
     Dates: start: 201202, end: 201212

REACTIONS (2)
  - Ligament rupture [None]
  - Tendonitis [None]
